FAERS Safety Report 4803005-1 (Version None)
Quarter: 2005Q4

REPORT INFORMATION
  Report Type: 
  Country: None (occurrence: None)
  Receive Date: 20051013
  Receipt Date: 20050923
  Transmission Date: 20060501
  Serious: Yes (Hospitalization)
  Sender: FDA-Public Use
  Company Number: GBS050918534

PATIENT
  Sex: Female

DRUGS (3)
  1. OLANZAPINE [Suspect]
  2. EFFEXOR [Concomitant]
  3. . [Concomitant]

REACTIONS (4)
  - DRUG EXPOSURE DURING PREGNANCY [None]
  - FEEDING DISORDER NEONATAL [None]
  - POOR SUCKING REFLEX [None]
  - POSTMATURE BABY [None]
